FAERS Safety Report 17486880 (Version 1)
Quarter: 2020Q1

REPORT INFORMATION
  Report Type: Spontaneous
  Country: FR (occurrence: FR)
  Receive Date: 20200303
  Receipt Date: 20200303
  Transmission Date: 20200409
  Serious: Yes (Hospitalization)
  Sender: FDA-Public Use
  Company Number: FR-TEVA-2020-FR-1194045

PATIENT
  Age: 49 Year
  Sex: Female
  Weight: 87 kg

DRUGS (3)
  1. AMOXICILLINE [Suspect]
     Active Substance: AMOXICILLIN
     Indication: PHARYNGITIS
     Dosage: 3 GM
     Route: 048
     Dates: start: 20200103, end: 20200108
  2. MINOXIDIL. [Suspect]
     Active Substance: MINOXIDIL
     Indication: ALOPECIA
     Route: 003
     Dates: start: 201912
  3. SOLUPRED 20 MG, COMPRIME EFFERVESCENT (PREDNISOLONE SODIUM SULFOBENZOATE) [Suspect]
     Active Substance: PREDNISOLONE SODIUM METAZOATE
     Indication: PHARYNGITIS
     Dosage: 4 DOSAGE FORM
     Route: 048
     Dates: start: 20200103, end: 20200105

REACTIONS (4)
  - Face oedema [Recovering/Resolving]
  - Erythema [Recovering/Resolving]
  - Hypersensitivity [Recovering/Resolving]
  - Pruritus [Recovering/Resolving]

NARRATIVE: CASE EVENT DATE: 20200109
